FAERS Safety Report 21723018 (Version 1)
Quarter: 2022Q4

REPORT INFORMATION
  Report Type: Spontaneous
  Country: CN (occurrence: CN)
  Receive Date: 20221213
  Receipt Date: 20221213
  Transmission Date: 20230112
  Serious: Yes (Life-Threatening, Hospitalization, Other)
  Sender: FDA-Public Use
  Company Number: CN-BAXTER-2022BAX026195

PATIENT
  Age: 15 Year
  Sex: Female

DRUGS (7)
  1. LEVOFLOXACIN [Suspect]
     Active Substance: LEVOFLOXACIN
     Indication: Pneumonia
     Dosage: UNK
     Route: 065
     Dates: start: 2019
  2. CEFOPERAZONE SODIUM\SULBACTAM SODIUM [Suspect]
     Active Substance: CEFOPERAZONE SODIUM\SULBACTAM SODIUM
     Indication: Pneumonia
     Dosage: UNK
     Route: 065
     Dates: start: 2019
  3. PIPERACILLIN SODIUM\TAZOBACTAM SODIUM [Suspect]
     Active Substance: PIPERACILLIN SODIUM\TAZOBACTAM SODIUM
     Indication: Pneumonia
     Dosage: UNK
     Route: 065
     Dates: start: 2019
  4. GRANULOCYTE COLONY-STIMULATING FACTOR NOS [Concomitant]
     Active Substance: GRANULOCYTE COLONY-STIMULATING FACTOR NOS
     Indication: Myelosuppression
     Route: 065
  5. DANAZOL [Concomitant]
     Active Substance: DANAZOL
     Indication: Aplastic anaemia
     Dosage: UNK
     Route: 065
     Dates: start: 2019
  6. CYCLOSPORINE [Concomitant]
     Active Substance: CYCLOSPORINE
     Indication: Immunosuppressant drug therapy
     Dosage: UNK
     Route: 065
     Dates: start: 2019
  7. PREDNISONE [Concomitant]
     Active Substance: PREDNISONE
     Indication: Immunosuppressant drug therapy
     Dosage: UNK
     Route: 065
     Dates: start: 2019

REACTIONS (8)
  - Bronchopulmonary aspergillosis [Recovered/Resolved]
  - Sepsis [Recovered/Resolved]
  - Pseudomonas infection [Recovered/Resolved]
  - Oral fungal infection [Recovered/Resolved]
  - Mouth ulceration [Recovered/Resolved]
  - Pleural effusion [Recovered/Resolved]
  - Shock haemorrhagic [Recovered/Resolved]
  - Gastrointestinal haemorrhage [Recovered/Resolved]

NARRATIVE: CASE EVENT DATE: 20190101
